FAERS Safety Report 6537731-3 (Version None)
Quarter: 2010Q1

REPORT INFORMATION
  Report Type: 
  Country: None (occurrence: None)
  Receive Date: 20100111
  Receipt Date: 20091230
  Transmission Date: 20100710
  Serious: Yes (Other)
  Sender: FDA-Public Use
  Company Number: 1000011155

PATIENT
  Age: 68 Year
  Sex: Female

DRUGS (1)
  1. NEBIVOLOL HCL [Suspect]
     Indication: CARDIAC FAILURE
     Dosage: 2.5 MG (2.5 MG, 1 IN 1 D), ORAL
     Route: 048
     Dates: start: 20091110, end: 20091110

REACTIONS (2)
  - BRADYCARDIA [None]
  - HYPOTENSION [None]
